FAERS Safety Report 5320688-0 (Version None)
Quarter: 2007Q1

REPORT INFORMATION
  Report Type: 
  Country: None (occurrence: None)
  Receive Date: 20070220
  Receipt Date: 20061212
  Transmission Date: 20070707
  Serious: No
  Sender: FDA-Public Use
  Company Number: WAES 0612USA02405

PATIENT
  Age: 56 Year
  Sex: Female
  Weight: 95.2554 kg

DRUGS (13)
  1. JANUVIA [Suspect]
     Indication: DIABETES MELLITUS NON-INSULIN-DEPENDENT
     Dosage: DAILY PO
     Route: 048
     Dates: start: 20061116, end: 20061207
  2. ALLEGRA [Concomitant]
  3. AXERT [Concomitant]
  4. GLYSET [Concomitant]
  5. LEXAPRO [Concomitant]
  6. NEURONTIN [Concomitant]
  7. PROMETRIUM [Concomitant]
  8. PROTONIX [Concomitant]
  9. SINGULAIR [Concomitant]
  10. TOPAMAX [Concomitant]
  11. WELCHOL [Concomitant]
  12. LEVOTHYROXINE SODIUM [Concomitant]
  13. METFORMIN HYDROCHLORIDE [Concomitant]

REACTIONS (3)
  - INCORRECT DOSE ADMINISTERED [None]
  - NAIL DISORDER [None]
  - OVERDOSE [None]
